FAERS Safety Report 5438703-2 (Version None)
Quarter: 2007Q3

REPORT INFORMATION
  Report Type: 
  Country: None (occurrence: None)
  Receive Date: 20070831
  Receipt Date: 20070823
  Transmission Date: 20080115
  Serious: No
  Sender: FDA-Public Use
  Company Number: A0674039A

PATIENT
  Age: 33 Year
  Sex: Female

DRUGS (5)
  1. ALLI [Suspect]
     Indication: DRUG USE FOR UNKNOWN INDICATION
     Dates: start: 20070623
  2. IRON SUPPLEMENT [Concomitant]
  3. ACETAMINOPHEN AND CODEINE PHOSPHATE [Concomitant]
  4. CALCIUM + D [Concomitant]
  5. NECON [Concomitant]

REACTIONS (3)
  - FLATULENCE [None]
  - RECTAL DISCHARGE [None]
  - WEIGHT FLUCTUATION [None]
